FAERS Safety Report 14244155 (Version 1)
Quarter: 2017Q4

REPORT INFORMATION
  Report Type: Spontaneous
  Country: US (occurrence: US)
  Receive Date: 20171201
  Receipt Date: 20171201
  Transmission Date: 20180321
  Serious: Yes (Death, Hospitalization, Other)
  Sender: FDA-Public Use
  Company Number: US-B.I. PHARMACEUTICALS,INC./RIDGEFIELD-2017-BI-063902

PATIENT
  Age: 65 Year
  Sex: Male

DRUGS (2)
  1. GILOTRIF [Suspect]
     Active Substance: AFATINIB
     Indication: NON-SMALL CELL LUNG CANCER
  2. GILOTRIF [Suspect]
     Active Substance: AFATINIB
     Indication: EGFR GENE MUTATION
     Route: 048
     Dates: start: 201601

REACTIONS (8)
  - Metastases to liver [Unknown]
  - Sepsis [Fatal]
  - Metastases to bone [Unknown]
  - Metastases to central nervous system [Unknown]
  - Lymphadenopathy [Unknown]
  - Therapy partial responder [Unknown]
  - Small cell lung cancer metastatic [Not Recovered/Not Resolved]
  - Pneumonia [Fatal]
